FAERS Safety Report 25202856 (Version 1)
Quarter: 2025Q2

REPORT INFORMATION
  Report Type: Other
  Country: US (occurrence: US)
  Receive Date: 20250416
  Receipt Date: 20250416
  Transmission Date: 20250716
  Serious: Yes (Other)
  Sender: Velzen Pharma
  Company Number: US-Velzen pharma pvt ltd-2175003

PATIENT
  Age: 86 Year
  Sex: Female

DRUGS (1)
  1. GLYCOPYRROLATE [Suspect]
     Active Substance: GLYCOPYRROLATE
     Indication: Sinus bradycardia

REACTIONS (4)
  - Stress cardiomyopathy [Recovered/Resolved]
  - Product use in unapproved indication [Unknown]
  - Ventricular tachycardia [Recovered/Resolved]
  - Cardiac failure acute [Recovered/Resolved]
